FAERS Safety Report 8049773-X (Version None)
Quarter: 2012Q1

REPORT INFORMATION
  Report Type: 
  Country: None (occurrence: None)
  Receive Date: 20120117
  Receipt Date: 20120109
  Transmission Date: 20120608
  Serious: Yes (Hospitalization)
  Sender: FDA-Public Use
  Company Number: US-BAYER-2011-038780

PATIENT
  Age: 26 Year
  Sex: Female
  Weight: 84.354 kg

DRUGS (7)
  1. YASMIN [Suspect]
     Dosage: UNK
     Dates: start: 20070901
  2. ACETAMINOPHEN [Concomitant]
     Dosage: UNK
     Dates: start: 20090901
  3. YASMIN [Suspect]
     Indication: CONTRACEPTION
     Dosage: UNK
     Route: 048
     Dates: start: 20070301
  4. MOTRIN [Concomitant]
     Dosage: UNK
     Dates: start: 20090901
  5. IBUPROFEN (ADVIL) [Concomitant]
     Dosage: UNK
     Dates: start: 20091001
  6. DROSPIRENONE AND ETHINYL ESTRADIOL [Suspect]
     Indication: CONTRACEPTION
     Dosage: UNK
     Dates: start: 20070101
  7. YAZ [Suspect]
     Indication: CONTRACEPTION
     Dosage: UNK
     Route: 048
     Dates: start: 20060901

REACTIONS (7)
  - PAIN [None]
  - ANXIETY [None]
  - QUALITY OF LIFE DECREASED [None]
  - GALLBLADDER INJURY [None]
  - ANHEDONIA [None]
  - FEAR [None]
  - CHOLELITHIASIS [None]
